FAERS Safety Report 13044337 (Version 1)
Quarter: 2016Q4

REPORT INFORMATION
  Report Type: Spontaneous
  Country: US (occurrence: US)
  Receive Date: 20161220
  Receipt Date: 20161220
  Transmission Date: 20170207
  Serious: No
  Sender: FDA-Public Use
  Company Number: US-ROCHE-1037282

PATIENT
  Age: 50 Year
  Sex: Female
  Weight: 108.96 kg

DRUGS (5)
  1. MORPHINE ER [Concomitant]
     Active Substance: MORPHINE
     Indication: PAIN
     Route: 048
  2. ZELBORAF [Suspect]
     Active Substance: VEMURAFENIB
     Indication: MALIGNANT MELANOMA
     Route: 048
     Dates: start: 20120117, end: 20120201
  3. POTASSIUM CHLORIDE. [Concomitant]
     Active Substance: POTASSIUM CHLORIDE
     Route: 048
  4. DEXA [Concomitant]
     Active Substance: DEXAMETHASONE
     Route: 048
  5. ZOFRAN [Concomitant]
     Active Substance: ONDANSETRON HYDROCHLORIDE
     Route: 065

REACTIONS (10)
  - Arthralgia [Unknown]
  - Pyrexia [Unknown]
  - Disease progression [Unknown]
  - Malaise [Unknown]
  - Pruritus [Unknown]
  - Nausea [Unknown]
  - Fatigue [Unknown]
  - Decreased appetite [Unknown]
  - No adverse event [Unknown]
  - Rash [Unknown]

NARRATIVE: CASE EVENT DATE: 20120131
